FAERS Safety Report 4281381-9 (Version None)
Quarter: 2004Q1

REPORT INFORMATION
  Report Type: 
  Country: None (occurrence: None)
  Receive Date: 20040112
  Receipt Date: 20030418
  Transmission Date: 20041129
  Serious: Yes (Other)
  Sender: FDA-Public Use
  Company Number: NSADSS2003019216

PATIENT
  Age: 55 Year
  Sex: Female

DRUGS (2)
  1. REOPRO [Suspect]
     Indication: CORONARY ARTERY DISEASE
     Dosage: , 1 IN 1 AS NECESSARY, INTRAVENOUS
     Route: 042
     Dates: start: 20010201, end: 20010201
  2. REOPRO [Suspect]
     Indication: CORONARY ARTERY DISEASE
     Dosage: , 1 IN 1 AS NECESSARY, INTRAVENOUS
     Route: 042
     Dates: start: 20030418, end: 20030418

REACTIONS (1)
  - HAEMATOMA [None]
